FAERS Safety Report 13065037 (Version 1)
Quarter: 2016Q4

REPORT INFORMATION
  Report Type: Spontaneous
  Country: FR (occurrence: FR)
  Receive Date: 20161227
  Receipt Date: 20161227
  Transmission Date: 20170207
  Serious: Yes (Hospitalization)
  Sender: FDA-Public Use
  Company Number: FR-009507513-1612FRA011947

PATIENT
  Age: 43 Year
  Sex: Male

DRUGS (19)
  1. NOXAFIL [Suspect]
     Active Substance: POSACONAZOLE
     Indication: ANTI-INFECTIVE THERAPY
     Dosage: 200 MG, TID
     Dates: end: 20121201
  2. ZOPHREN (ONDANSETRON) [Concomitant]
     Active Substance: ONDANSETRON
  3. TAZOCILLINE [Concomitant]
     Active Substance: PIPERACILLIN SODIUM\TAZOBACTAM SODIUM
     Indication: ANTI-INFECTIVE THERAPY
     Dosage: 4 G, TID
  4. MOPRAL (OMEPRAZOLE) [Concomitant]
     Active Substance: OMEPRAZOLE SODIUM
     Indication: ADJUVANT THERAPY
  5. TRAMADOL HYDROCHLORIDE. [Concomitant]
     Active Substance: TRAMADOL HYDROCHLORIDE
     Indication: ADJUVANT THERAPY
  6. VANCOMYCIN [Concomitant]
     Active Substance: VANCOMYCIN
     Indication: ANTI-INFECTIVE THERAPY
     Dosage: 2 G, QD
  7. ASPARAGINASE [Concomitant]
     Active Substance: ASPARAGINASE
  8. PERFALGAN [Concomitant]
     Active Substance: ACETAMINOPHEN
     Indication: ADJUVANT THERAPY
  9. DEBRIDAT [Concomitant]
     Active Substance: TRIMEBUTINE MALEATE
     Indication: ADJUVANT THERAPY
  10. METHOTREXATE. [Concomitant]
     Active Substance: METHOTREXATE
  11. VINCRISTINE [Concomitant]
     Active Substance: VINCRISTINE
  12. METHYLPREDNISOLONE. [Concomitant]
     Active Substance: METHYLPREDNISOLONE
  13. CYTARABINE. [Concomitant]
     Active Substance: CYTARABINE
  14. VOGALENE [Concomitant]
     Active Substance: METOPIMAZINE
     Indication: ADJUVANT THERAPY
  15. IMOVANE [Concomitant]
     Active Substance: ZOPICLONE
     Indication: ADJUVANT THERAPY
  16. XANAX [Concomitant]
     Active Substance: ALPRAZOLAM
     Indication: ADJUVANT THERAPY
  17. ZELITREX [Suspect]
     Active Substance: VALACYCLOVIR HYDROCHLORIDE
     Indication: ANTI-INFECTIVE THERAPY
     Dosage: 60 MG, BID
     Dates: end: 20121201
  18. LOXEN [Concomitant]
     Active Substance: NICARDIPINE HYDROCHLORIDE
     Indication: ADJUVANT THERAPY
  19. VISMED [Concomitant]
     Active Substance: HYALURONATE SODIUM
     Indication: ADJUVANT THERAPY
     Dosage: UNK, AS NEEDED

REACTIONS (1)
  - Seizure [Recovered/Resolved]

NARRATIVE: CASE EVENT DATE: 20121128
